FAERS Safety Report 18501865 (Version 1)
Quarter: 2020Q4

REPORT INFORMATION
  Report Type: Spontaneous
  Country: US (occurrence: US)
  Receive Date: 20201113
  Receipt Date: 20201113
  Transmission Date: 20210114
  Serious: Yes (Disabling)
  Sender: FDA-Public Use
  Company Number: None

PATIENT
  Age: 27 Year
  Weight: 65.25 kg

DRUGS (9)
  1. ADDERALL [Concomitant]
     Active Substance: AMPHETAMINE ASPARTATE\AMPHETAMINE SULFATE\DEXTROAMPHETAMINE SACCHARATE\DEXTROAMPHETAMINE SULFATE
  2. LAMOTRIGINE. [Concomitant]
     Active Substance: LAMOTRIGINE
  3. 10000 LUX LED LIGHT THERAPY LIGHT [Concomitant]
  4. VITAMIN B3 [Concomitant]
     Active Substance: NIACIN
  5. WOMEN^S COMPLETE MULTIVITAMIN [Concomitant]
  6. DEXTROAMPHET SACCHARAT, AMPHET ASPARTATE, DEXTROAMPHET SULFATE AND AMPHET SULFAT [Suspect]
     Active Substance: AMPHETAMINE ASPARTATE\AMPHETAMINE SULFATE\DEXTROAMPHETAMINE SACCHARATE\DEXTROAMPHETAMINE SULFATE
     Indication: ATTENTION DEFICIT HYPERACTIVITY DISORDER
     Dosage: ?          QUANTITY:1 TABLET(S);?
     Route: 048
     Dates: start: 20200901, end: 20201112
  7. CBD OIL [Concomitant]
     Active Substance: CANNABIDIOL\HERBALS
  8. ADDERALL 20 XR [Concomitant]
  9. VITAMIN D SUPPLEMENT [Concomitant]
     Active Substance: VITAMIN D NOS

REACTIONS (13)
  - Product dose omission in error [None]
  - Product complaint [None]
  - Product taste abnormal [None]
  - Product substitution issue [None]
  - Anxiety [None]
  - Therapeutic product effect incomplete [None]
  - Incorrect dose administered [None]
  - Mental disorder [None]
  - Impaired work ability [None]
  - Cluster headache [None]
  - Drug intolerance [None]
  - Somnolence [None]
  - Product physical issue [None]

NARRATIVE: CASE EVENT DATE: 20201025
